FAERS Safety Report 8288988-2 (Version None)
Quarter: 2012Q2

REPORT INFORMATION
  Report Type: 
  Country: None (occurrence: None)
  Receive Date: 20120417
  Receipt Date: 20120403
  Transmission Date: 20120825
  Serious: Yes (Other)
  Sender: FDA-Public Use
  Company Number: ES-JNJFOC-20120309752

PATIENT
  Age: 32 Year
  Sex: Male
  Weight: 97 kg

DRUGS (2)
  1. REMICADE [Suspect]
     Indication: PSORIATIC ARTHROPATHY
     Dosage: RECEIVED A TOTAL OF 3 INFUSIONS
     Route: 042
     Dates: start: 20120119, end: 20120301
  2. REMICADE [Suspect]
     Indication: PSORIASIS
     Dosage: RECEIVED A TOTAL OF 3 INFUSIONS
     Route: 042
     Dates: start: 20120119, end: 20120301

REACTIONS (1)
  - DISSEMINATED TUBERCULOSIS [None]
